FAERS Safety Report 22166382 (Version 1)
Quarter: 2023Q2

REPORT INFORMATION
  Report Type: Other
  Country: RU (occurrence: None)
  Receive Date: 20230403
  Receipt Date: 20230403
  Transmission Date: 20230721
  Serious: Yes (Other)
  Sender: FDA-Public Use
  Company Number: RU-ROCHE-3320877

PATIENT
  Age: 70 Year
  Sex: Male

DRUGS (2)
  1. VEMURAFENIB [Suspect]
     Active Substance: VEMURAFENIB
     Indication: Malignant melanoma
     Route: 065
  2. COBIMETINIB [Suspect]
     Active Substance: COBIMETINIB
     Indication: Malignant melanoma
     Route: 065

REACTIONS (4)
  - Body temperature increased [Unknown]
  - Vomiting [Unknown]
  - Erythema [Unknown]
  - Asthenia [Unknown]

NARRATIVE: CASE EVENT DATE: 20230325
